FAERS Safety Report 21986271 (Version 1)
Quarter: 2023Q1

REPORT INFORMATION
  Report Type: Spontaneous
  Country: None (occurrence: US)
  Receive Date: 20230213
  Receipt Date: 20230213
  Transmission Date: 20230418
  Serious: No
  Sender: FDA-Public Use
  Company Number: US-STI Pharma LLC-2137865

PATIENT
  Age: 68 Year
  Sex: Male

DRUGS (5)
  1. ETHAMBUTOL HYDROCHLORIDE [Suspect]
     Active Substance: ETHAMBUTOL HYDROCHLORIDE
  2. ARIKAYCE [Concomitant]
     Active Substance: AMIKACIN
  3. LEVAQUIN [Concomitant]
     Active Substance: LEVOFLOXACIN
  4. AZITHROMYCIN [Concomitant]
     Active Substance: AZITHROMYCIN
  5. RIFAMPIN [Concomitant]
     Active Substance: RIFAMPIN

REACTIONS (2)
  - Atypical mycobacterium test positive [Unknown]
  - Smear site unspecified abnormal [Unknown]
